FAERS Safety Report 10859421 (Version 1)
Quarter: 2015Q1

REPORT INFORMATION
  Report Type: Spontaneous
  Country: DE (occurrence: DE)
  Receive Date: 20150223
  Receipt Date: 20150223
  Transmission Date: 20150721
  Serious: Yes (Hospitalization)
  Sender: FDA-Public Use
  Company Number: DE-AMGEN-DEUSP2015015600

PATIENT
  Sex: Female

DRUGS (19)
  1. PREDNISOLONE. [Suspect]
     Active Substance: PREDNISOLONE
     Indication: B-CELL LYMPHOMA
     Dosage: 100 MG, Q2W FOR 1 DAY
     Route: 042
     Dates: start: 20140930, end: 20140930
  2. VINCRISTINE [Suspect]
     Active Substance: VINCRISTINE
     Indication: B-CELL LYMPHOMA
     Dosage: 3.2 MG, Q2W FOR 1 DAY
     Route: 042
     Dates: start: 20140815, end: 20140815
  3. ONDANSETRON [Concomitant]
     Active Substance: ONDANSETRON
     Indication: PROPHYLAXIS OF NAUSEA AND VOMITING
     Dosage: 8 MG, 0-0-1(DAY1), 1-0-0(DAY2)
     Route: 048
     Dates: start: 20140714
  4. CYCLOPHOSPHAMIDE. [Suspect]
     Active Substance: CYCLOPHOSPHAMIDE
     Indication: B-CELL LYMPHOMA
     Dosage: 1200 MG, Q2W FOR 1 DAY
     Route: 042
     Dates: start: 20140930, end: 20140930
  5. RITUXIMAB [Concomitant]
     Active Substance: RITUXIMAB
     Indication: B-CELL LYMPHOMA
     Dosage: 600 MG, Q2W
     Route: 042
     Dates: start: 20140929
  6. ACICLOVIR [Concomitant]
     Active Substance: ACYCLOVIR
     Indication: ANTIVIRAL PROPHYLAXIS
     Dosage: 400 MG, 3 TIMES A DAY
     Route: 048
     Dates: start: 20140714
  7. ALIZAPRIDA [Concomitant]
     Indication: PROPHYLAXIS
     Dosage: 50 MG, 1-1-1, DAY 2+3
     Route: 048
     Dates: start: 20140715
  8. CLARITHROMYCIN. [Concomitant]
     Active Substance: CLARITHROMYCIN
     Indication: INFLUENZA LIKE ILLNESS
     Dosage: 250 MG, 2 TIMES A DAY FOR 7 DAYS
     Route: 048
     Dates: start: 20140807, end: 20140813
  9. PREDNISOLON                        /00016201/ [Concomitant]
     Active Substance: PREDNISOLONE
     Indication: PROPHYLAXIS
     Dosage: 50 MG, 1-1-1 (DAY2-6)
     Route: 048
     Dates: start: 20140715
  10. METRONIDAZOL                       /00012501/ [Concomitant]
     Active Substance: METRONIDAZOLE
     Indication: INFECTION
     Dosage: 400 MG, 3 TIMES A DAY FOR 3 DAYS
     Route: 048
     Dates: start: 20140818, end: 20140820
  11. PEGFILGRASTIM [Suspect]
     Active Substance: PEGFILGRASTIM
     Indication: B-CELL LYMPHOMA
     Dosage: 6 MG, Q2W FOR 1 DAY
     Route: 058
     Dates: start: 20141003, end: 20141003
  12. ALLOPURINOL. [Concomitant]
     Active Substance: ALLOPURINOL
     Indication: GOUT
     Dosage: 300 MG, 1 TIMES A DAY FOR 10 DAYS
     Route: 048
     Dates: start: 20140713, end: 20140722
  13. SULFAMETHOXAZOLE AND TRIMETHOPRIM [Concomitant]
     Active Substance: SULFAMETHOXAZOLE\TRIMETHOPRIM
     Indication: PROPHYLAXIS
     Dosage: 860 MG, 1-0-0, MO-WED-FRI
     Route: 048
     Dates: start: 20140714
  14. LANSOPRAZOLE. [Concomitant]
     Active Substance: LANSOPRAZOLE
     Indication: PROPHYLAXIS
     Dosage: 30 MG, 1 TIMES A DAY
     Route: 048
     Dates: start: 20140714
  15. AMPICILLIN [Concomitant]
     Active Substance: AMPICILLIN
     Indication: INFLUENZA LIKE ILLNESS
     Dosage: 10 TAOL, 1-0-1 FOR 7 DAYS
     Route: 048
     Dates: start: 20140807, end: 20140813
  16. DOXORUBICINE                       /00330901/ [Suspect]
     Active Substance: DOXORUBICIN
     Indication: B-CELL LYMPHOMA
     Dosage: 80 MG, Q2W FOR 1 DAY
     Route: 042
     Dates: start: 20140930, end: 20140930
  17. CIPROFLOXACIN. [Concomitant]
     Active Substance: CIPROFLOXACIN
     Indication: PROPHYLAXIS
     Dosage: 500 MG, 1-0-1. DAY6-12
     Route: 048
     Dates: start: 20140720
  18. ENOXAPARIN SODIUM. [Concomitant]
     Active Substance: ENOXAPARIN SODIUM
     Indication: PROPHYLAXIS
     Dosage: 40 ML, 1 TIMES A DAY
     Route: 058
     Dates: start: 20140807
  19. PREDNISONE. [Suspect]
     Active Substance: PREDNISONE
     Indication: B-CELL LYMPHOMA
     Dosage: 500 MG, Q2W, D2-6 FOR 7 DAYS
     Route: 048
     Dates: start: 20140930, end: 20141006

REACTIONS (2)
  - Neutropenic infection [Recovered/Resolved]
  - Respiratory tract infection [Recovered/Resolved]

NARRATIVE: CASE EVENT DATE: 20141007
